FAERS Safety Report 7636428-6 (Version None)
Quarter: 2011Q3

REPORT INFORMATION
  Report Type: 
  Country: None (occurrence: None)
  Receive Date: 20110726
  Receipt Date: 20110723
  Transmission Date: 20111222
  Serious: Yes (Hospitalization)
  Sender: FDA-Public Use
  Company Number: CZ-BRISTOL-MYERS SQUIBB COMPANY-15897218

PATIENT
  Age: 68 Year
  Sex: Male

DRUGS (4)
  1. BLINDED: SAXAGLIPTIN [Suspect]
     Indication: TYPE 2 DIABETES MELLITUS
     Dosage: INTERR ON 08JUL2011,RESTARTED ON 08JUL2011
     Dates: start: 20100818
  2. GLUCOPHAGE [Suspect]
     Indication: TYPE 2 DIABETES MELLITUS
  3. LANTUS [Suspect]
     Indication: TYPE 2 DIABETES MELLITUS
  4. PLACEBO [Suspect]
     Indication: TYPE 2 DIABETES MELLITUS
     Dates: start: 20100818

REACTIONS (1)
  - GASTROENTERITIS [None]
